FAERS Safety Report 8584603-9 (Version None)
Quarter: 2012Q3

REPORT INFORMATION
  Report Type: 
  Country: None (occurrence: None)
  Receive Date: 20120802
  Receipt Date: 20120802
  Transmission Date: 20120928
  Serious: Yes (Hospitalization)
  Sender: FDA-Public Use
  Company Number: None

PATIENT
  Sex: Male
  Weight: 76.7 kg

DRUGS (1)
  1. INTRON A [Suspect]
     Dosage: 26 MILLION IU
     Dates: start: 20120723

REACTIONS (5)
  - NAUSEA [None]
  - VOMITING [None]
  - DEHYDRATION [None]
  - THERAPY CESSATION [None]
  - DIARRHOEA [None]
